FAERS Safety Report 9803327 (Version 4)
Quarter: 2014Q1

REPORT INFORMATION
  Report Type: Spontaneous
  Country: US (occurrence: None)
  Receive Date: 20140102
  Receipt Date: 20140219
  Transmission Date: 20141002
  Serious: Yes (Other)
  Sender: FDA-Public Use
  Company Number: UTC-042162

PATIENT
  Age: 64 Year
  Sex: Female
  Weight: 67.3 kg

DRUGS (2)
  1. REMODULIN [Suspect]
     Indication: PULMONARY ARTERIAL HYPERTENSION
     Dosage: 28.8 UG/KG (0.02 UG/KG, 1 IN 1 MIN), SUBCUTANEOUS
     Route: 058
     Dates: start: 20120901, end: 20140204
  2. LETAIRIS (AMBRISENTAN) (TABLET) (AMBRISENTAN) [Suspect]
     Indication: PRODUCT USED FOR UNKNOWN INDICATION
     Dosage: 10 MG, 1 IN 1 D
     Dates: start: 20131129

REACTIONS (18)
  - Fall [None]
  - Rib fracture [None]
  - Dyspepsia [None]
  - Fatigue [None]
  - Cough [None]
  - Infusion site pain [None]
  - Infusion site reaction [None]
  - Nasal congestion [None]
  - Infusion site vesicles [None]
  - Burns second degree [None]
  - Malaise [None]
  - Pyrexia [None]
  - Nausea [None]
  - Vomiting [None]
  - Pain in extremity [None]
  - Pain in extremity [None]
  - Diarrhoea [None]
  - Artificial crown procedure [None]
